FAERS Safety Report 5865145-8 (Version None)
Quarter: 2008Q3

REPORT INFORMATION
  Report Type: 
  Country: None (occurrence: None)
  Receive Date: 20080829
  Receipt Date: 20080822
  Transmission Date: 20090109
  Serious: Yes (Hospitalization, Other)
  Sender: FDA-Public Use
  Company Number: A0745036A

PATIENT
  Age: 75 Year
  Sex: Female
  Weight: 77.3 kg

DRUGS (3)
  1. AVANDIA [Suspect]
     Indication: DRUG USE FOR UNKNOWN INDICATION
     Dosage: 4MG PER DAY
     Dates: start: 20040101, end: 20070501
  2. JANUVIA [Concomitant]
     Dates: start: 20060101
  3. GLUCOTROL XL [Concomitant]
     Dates: start: 19910101, end: 20060101

REACTIONS (3)
  - FATIGUE [None]
  - GAIT DISTURBANCE [None]
  - MYOCARDIAL INFARCTION [None]
